FAERS Safety Report 7973269-4 (Version None)
Quarter: 2011Q4

REPORT INFORMATION
  Report Type: 
  Country: None (occurrence: None)
  Receive Date: 20111213
  Receipt Date: 20111208
  Transmission Date: 20120403
  Serious: Yes (Hospitalization, Other)
  Sender: FDA-Public Use
  Company Number: PHHY2011BR107724

PATIENT
  Age: 88 Year
  Sex: Female

DRUGS (2)
  1. DIOVAN [Suspect]
     Indication: HYPERTENSION
     Dosage: 80 MG, ONE TABLET DAILY
  2. DIURETICS [Suspect]
     Dosage: UNK UKN, UNK

REACTIONS (3)
  - HYPONATRAEMIA [None]
  - SYNCOPE [None]
  - FALL [None]
